FAERS Safety Report 10301790 (Version 2)
Quarter: 2014Q1

REPORT INFORMATION
  Report Type: Spontaneous
  Country: US (occurrence: None)
  Receive Date: 20120817
  Receipt Date: 20130815
  Transmission Date: 20141002
  Serious: Yes (Hospitalization, Other)
  Sender: FDA-Public Use
  Company Number: ADR-2012-00247

PATIENT
  Sex: Female

DRUGS (2)
  1. LIORESAL [Suspect]
     Indication: MUSCLE SPASTICITY
  2. LIORESAL [Suspect]
     Indication: MUSCLE SPASTICITY

REACTIONS (12)
  - Drug withdrawal syndrome [None]
  - Decubitus ulcer [None]
  - Headache [None]
  - Muscle spasms [None]
  - Muscle spasticity [None]
  - Muscle tightness [None]
  - Pruritus [None]
  - Pyrexia [None]
  - Staphylococcal skin infection [None]
  - Therapeutic response decreased [None]
  - Enterococcal infection [None]
  - Urticaria [None]
